FAERS Safety Report 7014441-X (Version None)
Quarter: 2010Q3

REPORT INFORMATION
  Report Type: 
  Country: None (occurrence: None)
  Receive Date: 20100927
  Receipt Date: 20100915
  Transmission Date: 20110219
  Serious: Yes (Hospitalization)
  Sender: FDA-Public Use
  Company Number: CA-JNJFOC-20100905589

PATIENT
  Sex: Female
  Weight: 70.5 kg

DRUGS (16)
  1. REMICADE [Suspect]
     Indication: PRODUCT USED FOR UNKNOWN INDICATION
     Route: 042
  2. IMURAN [Concomitant]
     Route: 048
  3. PREDNISONE [Concomitant]
     Route: 048
  4. LOPERAMIDE [Concomitant]
  5. BACLOFEN [Concomitant]
  6. NEURONTIN [Concomitant]
  7. CYMBALTA [Concomitant]
  8. METOPROLOL TARTRATE [Concomitant]
  9. PANTOLOC [Concomitant]
  10. COLCHICINE [Concomitant]
  11. NYSTATIN [Concomitant]
  12. IMOVANE [Concomitant]
  13. DILAUDID [Concomitant]
  14. ATIVAN [Concomitant]
  15. TORADOL [Concomitant]
  16. INDOMETHACIN [Concomitant]

REACTIONS (1)
  - HAEMATOCHEZIA [None]
